FAERS Safety Report 9071181 (Version 1)
Quarter: 2013Q1

REPORT INFORMATION
  Report Type: Spontaneous
  Country: BR (occurrence: BR)
  Receive Date: 20130206
  Receipt Date: 20130206
  Transmission Date: 20140127
  Serious: Yes (Life-Threatening, Hospitalization, Disabling)
  Sender: FDA-Public Use
  Company Number: BR-B.I. PHARMACEUTICALS,INC./RIDGEFIELD-2013-BR-00094BR

PATIENT
  Age: 66 Year
  Sex: Female

DRUGS (5)
  1. PRADAXA [Suspect]
     Indication: ATRIAL FIBRILLATION
     Dosage: 300 MG
     Route: 048
     Dates: start: 201203, end: 20130123
  2. RITMONOR [Concomitant]
     Indication: ATRIAL FIBRILLATION
     Dosage: 600 MG
     Dates: start: 201203
  3. ATACAND [Concomitant]
     Indication: HYPERTENSION
     Dates: start: 2003
  4. CRESTOR [Concomitant]
     Indication: DYSLIPIDAEMIA
     Dates: start: 2003
  5. SYNTROID [Concomitant]
     Indication: HYPOTHYROIDISM
     Dates: start: 2003

REACTIONS (5)
  - Gastrointestinal haemorrhage [Not Recovered/Not Resolved]
  - Melaena [Not Recovered/Not Resolved]
  - Anaemia [Not Recovered/Not Resolved]
  - Haemodynamic instability [Not Recovered/Not Resolved]
  - Cardio-respiratory arrest [Unknown]
